FAERS Safety Report 4733013-0 (Version None)
Quarter: 2005Q3

REPORT INFORMATION
  Report Type: 
  Country: None (occurrence: None)
  Receive Date: 20050801
  Receipt Date: 20050718
  Transmission Date: 20060218
  Serious: Yes (Hospitalization)
  Sender: FDA-Public Use
  Company Number: 2005103420

PATIENT
  Sex: Female

DRUGS (2)
  1. FRAGMIN [Suspect]
     Indication: PROPHYLAXIS
     Dosage: 5000 I.U (5000 I.U., 1 IN 1 D), SUBCUTANEOUS
     Route: 058
     Dates: start: 20050628
  2. MEFENAMIC ACID [Suspect]
     Indication: PAIN
     Dosage: ORAL
     Route: 048
     Dates: start: 20050628

REACTIONS (1)
  - HEPATOCELLULAR DAMAGE [None]
